FAERS Safety Report 6889037-0 (Version None)
Quarter: 2010Q3

REPORT INFORMATION
  Report Type: 
  Country: None (occurrence: None)
  Receive Date: 20100730
  Receipt Date: 20071217
  Transmission Date: 20110219
  Serious: No
  Sender: FDA-Public Use
  Company Number: US-PFIZER INC-2008000961

PATIENT
  Sex: Male
  Weight: 91.363 kg

DRUGS (8)
  1. LIPITOR [Suspect]
     Indication: BLOOD CHOLESTEROL
     Route: 048
  2. CELEBREX [Concomitant]
     Indication: PAIN
     Route: 048
  3. ACIPHEX [Concomitant]
     Route: 048
  4. HYZAAR [Concomitant]
     Route: 048
  5. CHONDROITIN [Concomitant]
     Route: 048
  6. ACETYLSALICYLIC ACID SRT [Concomitant]
     Route: 048
  7. VITAMINS [Concomitant]
     Route: 048
  8. MOBIC [Concomitant]
     Route: 048

REACTIONS (1)
  - PAIN IN EXTREMITY [None]
